FAERS Safety Report 17966471 (Version 1)
Quarter: 2020Q2

REPORT INFORMATION
  Report Type: Spontaneous
  Country: AT (occurrence: AT)
  Receive Date: 20200630
  Receipt Date: 20200630
  Transmission Date: 20200714
  Serious: Yes (Other)
  Sender: FDA-Public Use
  Company Number: NVSC2020AT178647

PATIENT
  Age: 50 Year
  Sex: Female

DRUGS (1)
  1. CLAVAMOX 875 MG/125 MG - FILMTABLETTEN [Suspect]
     Active Substance: AMOXICILLIN\CLAVULANATE POTASSIUM
     Indication: PRODUCT USED FOR UNKNOWN INDICATION
     Dosage: UNK
     Route: 065
     Dates: start: 20200106, end: 20200106

REACTIONS (4)
  - Angioedema [Unknown]
  - Dermatitis exfoliative generalised [Unknown]
  - Dyspnoea [Unknown]
  - Type I hypersensitivity [Unknown]

NARRATIVE: CASE EVENT DATE: 20200106
